FAERS Safety Report 8116011-9 (Version None)
Quarter: 2012Q1

REPORT INFORMATION
  Report Type: 
  Country: None (occurrence: None)
  Receive Date: 20120206
  Receipt Date: 20120124
  Transmission Date: 20120608
  Serious: Yes (Hospitalization)
  Sender: FDA-Public Use
  Company Number: FR-ROCHE-1033534

PATIENT
  Sex: Female

DRUGS (7)
  1. CALCIUM CARBONATE [Concomitant]
  2. NEXIUM [Concomitant]
  3. PREDNISONE [Concomitant]
  4. MABTHERA [Suspect]
     Indication: RHEUMATOID ARTHRITIS
     Dosage: FREQUENCY: CYCLIC
     Route: 042
     Dates: start: 20110805, end: 20110818
  5. POTASSIUM CHLORIDE [Concomitant]
  6. ACETAMINOPHEN [Concomitant]
  7. ABSTRAL [Concomitant]

REACTIONS (1)
  - THROMBOCYTOPENIC PURPURA [None]
